FAERS Safety Report 10121128 (Version 1)
Quarter: 2014Q2

REPORT INFORMATION
  Report Type: Spontaneous
  Country: IT (occurrence: IT)
  Receive Date: 20140425
  Receipt Date: 20140425
  Transmission Date: 20141212
  Serious: Yes (Death)
  Sender: FDA-Public Use
  Company Number: IT-ASTRAZENECA-2014SE27646

PATIENT
  Age: 20047 Day
  Sex: Female
  Weight: 75 kg

DRUGS (5)
  1. SEROQUEL [Suspect]
     Indication: OBSESSIVE-COMPULSIVE DISORDER
     Route: 048
     Dates: start: 20140407, end: 20140407
  2. SEROQUEL [Suspect]
     Indication: OBSESSIVE-COMPULSIVE DISORDER
     Route: 048
     Dates: start: 20140407, end: 20140407
  3. SEROQUEL [Suspect]
     Indication: OBSESSIVE-COMPULSIVE DISORDER
     Route: 048
     Dates: start: 20140407, end: 20140407
  4. GLUCOPHAGE [Suspect]
     Indication: DIABETES MELLITUS
     Route: 065
     Dates: start: 20140407, end: 20140407
  5. DELORAZEPAM [Suspect]
     Indication: DEPRESSION
     Dosage: 1 MG/ML, 100 MG ONCE
     Route: 048
     Dates: start: 20140407, end: 20140407

REACTIONS (6)
  - Drug abuse [Fatal]
  - Completed suicide [Fatal]
  - Coma [Fatal]
  - Hypotension [Fatal]
  - Mydriasis [Fatal]
  - Respiratory failure [Fatal]
